FAERS Safety Report 20224666 (Version 2)
Quarter: 2022Q1

REPORT INFORMATION
  Report Type: Spontaneous
  Country: US (occurrence: US)
  Receive Date: 20211223
  Receipt Date: 20220105
  Transmission Date: 20220423
  Serious: Yes (Hospitalization, Other)
  Sender: FDA-Public Use
  Company Number: US-MLMSERVICE-20211207-3260580-1

PATIENT
  Age: 3 Decade
  Sex: Female

DRUGS (4)
  1. METHYLPREDNISOLONE SODIUM SUCCINATE [Suspect]
     Active Substance: METHYLPREDNISOLONE SODIUM SUCCINATE
     Indication: Premedication
     Dosage: 1 G
     Route: 042
  2. BLEOMYCIN [Concomitant]
     Active Substance: BLEOMYCIN SULFATE
     Indication: Encephalitis autoimmune
     Dosage: ON HOSPITALISATION DAY 4, 30 UNITS ON DAYS 2, 9 AND 16
  3. CISPLATIN [Concomitant]
     Active Substance: CISPLATIN
     Indication: Encephalitis autoimmune
     Dosage: ON DAYS 1-5,  FOUR 21-DAY CYCLES
  4. ETOPOSIDE [Concomitant]
     Active Substance: ETOPOSIDE
     Indication: Encephalitis autoimmune
     Dosage: HOSPITALISATION DAY 4, ON DAYS 1-5, FOUR 21-DAY CYCLES

REACTIONS (1)
  - Substance-induced psychotic disorder [Unknown]
